FAERS Safety Report 20241578 (Version 1)
Quarter: 2021Q4

REPORT INFORMATION
  Report Type: Spontaneous
  Country: US (occurrence: US)
  Receive Date: 20211228
  Receipt Date: 20211228
  Transmission Date: 20220303
  Serious: Yes (Hospitalization)
  Sender: FDA-Public Use
  Company Number: US-GE HEALTHCARE-2021CSU006613

PATIENT
  Age: 53 Year
  Sex: Female

DRUGS (2)
  1. GADOLINIUM [Suspect]
     Active Substance: GADOLINIUM
     Indication: Magnetic resonance imaging head
     Dosage: UNK UNK, SINGLE
     Route: 042
  2. GADOLINIUM [Suspect]
     Active Substance: GADOLINIUM
     Indication: Headache

REACTIONS (1)
  - Kounis syndrome [Recovered/Resolved]
